FAERS Safety Report 7206201-1 (Version None)
Quarter: 2010Q4

REPORT INFORMATION
  Report Type: 
  Country: None (occurrence: None)
  Receive Date: 20101217
  Receipt Date: 20101203
  Transmission Date: 20110411
  Serious: Yes (Hospitalization)
  Sender: FDA-Public Use
  Company Number: 017908

PATIENT
  Sex: Female

DRUGS (5)
  1. CERTOLIZUMAB PEGOL (CERTOLIZUMAB PEGOL) [Suspect]
     Indication: RHEUMATOID ARTHRITIS
     Dosage: (200 MG 1X/2 WEEKS SUBCUTANEOUS)
     Route: 058
     Dates: start: 20100324
  2. PREDNISOLONE [Suspect]
     Indication: RHEUMATOID ARTHRITIS
     Dosage: (5 MG QD, QAM ORAL)
     Route: 048
     Dates: start: 20091002
  3. METHOTREXATE [Suspect]
     Indication: RHEUMATOID ARTHRITIS
     Dosage: (INTERRUPTED ON 13, 19 AND 20-AUG-2010, 8MG WEEKLY (4 MG-2MG-2MG) ORAL)
     Route: 048
     Dates: start: 20091002
  4. RABEPRAZOLE SODIUM [Concomitant]
  5. PREDNISOLONE [Suspect]

REACTIONS (1)
  - URINARY TRACT INFECTION [None]
